FAERS Safety Report 13783807 (Version 1)
Quarter: 2017Q3

REPORT INFORMATION
  Report Type: Spontaneous
  Country: US (occurrence: US)
  Receive Date: 20170724
  Receipt Date: 20170724
  Transmission Date: 20171127
  Serious: No
  Sender: FDA-Public Use
  Company Number: US-LEXICON PHARMACEUTICALS, INC-17-1606-00489

PATIENT
  Age: 78 Year
  Sex: Female

DRUGS (7)
  1. ASPIRIN. [Concomitant]
     Active Substance: ASPIRIN
  2. MELATONIN [Concomitant]
     Active Substance: MELATONIN
  3. METFORMIN [Concomitant]
     Active Substance: METFORMIN HYDROCHLORIDE
  4. TELOTRISTAT ETHYL [Suspect]
     Active Substance: TELOTRISTAT ETHYL
     Indication: NEOPLASM MALIGNANT
     Route: 048
     Dates: start: 20170621, end: 20170621
  5. LISINOPRIL. [Concomitant]
     Active Substance: LISINOPRIL
  6. MAGNESIUM [Concomitant]
     Active Substance: MAGNESIUM
  7. VITAMIN D [Concomitant]
     Active Substance: CHOLECALCIFEROL

REACTIONS (3)
  - Flatulence [Unknown]
  - Diarrhoea [Unknown]
  - Abdominal pain upper [Unknown]

NARRATIVE: CASE EVENT DATE: 20170621
